FAERS Safety Report 4806503-X (Version None)
Quarter: 2005Q4

REPORT INFORMATION
  Report Type: 
  Country: None (occurrence: None)
  Receive Date: 20051021
  Receipt Date: 20051012
  Transmission Date: 20060501
  Serious: Yes (Hospitalization)
  Sender: FDA-Public Use
  Company Number: BR-BRISTOL-MYERS SQUIBB COMPANY-13142542

PATIENT
  Age: 56 Year
  Sex: Female

DRUGS (9)
  1. CISPLATIN [Suspect]
     Indication: GASTRIC CANCER
     Route: 041
     Dates: start: 20051004, end: 20051004
  2. FLUOROURACIL [Suspect]
     Indication: GASTRIC CANCER
     Route: 041
     Dates: start: 20051004, end: 20051009
  3. TYLEX [Concomitant]
     Indication: NECK PAIN
     Dates: start: 20050916
  4. DIPIRONE [Concomitant]
     Indication: NECK PAIN
     Dates: start: 20050916
  5. OMEPRAZOLE [Concomitant]
     Indication: PROPHYLAXIS
     Dates: start: 20050916
  6. MORPHINE [Concomitant]
     Indication: NECK PAIN
     Dates: start: 20050916
  7. HEPARIN [Concomitant]
     Indication: THROMBOSIS PROPHYLAXIS
     Dates: start: 20050916
  8. AMITRIPTYLINE HCL [Concomitant]
     Indication: NECK PAIN
     Dates: start: 20050929
  9. GABAPENTIN [Concomitant]
     Indication: NECK PAIN
     Dates: start: 20050929

REACTIONS (1)
  - VOMITING [None]
